FAERS Safety Report 4824680-1 (Version None)
Quarter: 2005Q4

REPORT INFORMATION
  Report Type: 
  Country: None (occurrence: None)
  Receive Date: 20051012
  Receipt Date: 20050729
  Transmission Date: 20060501
  Serious: No
  Sender: FDA-Public Use
  Company Number: 2005S1000178

PATIENT
  Age: 51 Year
  Weight: 105 kg

DRUGS (8)
  1. CUBICIN [Suspect]
     Indication: STAPHYLOCOCCAL INFECTION
     Dosage: 4 MG/ KG; Q24H; IV
     Route: 042
     Dates: start: 20050629, end: 20050722
  2. CUBICIN [Suspect]
     Indication: SUBCUTANEOUS ABSCESS
     Dosage: 4 MG/ KG; Q24H; IV
     Route: 042
     Dates: start: 20050629, end: 20050722
  3. SIMVASTATIN [Concomitant]
  4. BACTROBAN [Concomitant]
  5. CHLORHEXIDINE [Concomitant]
  6. VANCOMYCIN [Concomitant]
  7. CEFUROXIME [Concomitant]
  8. CONTRAST DYE [Concomitant]

REACTIONS (2)
  - BLOOD CREATINE PHOSPHOKINASE INCREASED [None]
  - SKIN LESION [None]
